FAERS Safety Report 9101483 (Version 1)
Quarter: 2013Q1

REPORT INFORMATION
  Report Type: Spontaneous
  Country: US (occurrence: US)
  Receive Date: 20130215
  Receipt Date: 20130215
  Transmission Date: 20140127
  Serious: Yes (Other)
  Sender: FDA-Public Use
  Company Number: US-PFIZER INC-2013056264

PATIENT
  Age: 53 Year
  Sex: Male
  Weight: 84.81 kg

DRUGS (2)
  1. BENEFIX [Suspect]
     Indication: PROPHYLAXIS
     Dosage: 20 IU/KG, 3 TIMES PER WEEK
  2. BENEFIX [Suspect]
     Indication: FACTOR IX DEFICIENCY

REACTIONS (2)
  - Haemorrhage [Unknown]
  - Joint injury [Unknown]
